FAERS Safety Report 15311487 (Version 1)
Quarter: 2018Q3

REPORT INFORMATION
  Report Type: Spontaneous
  Country: US (occurrence: US)
  Receive Date: 20180823
  Receipt Date: 20180823
  Transmission Date: 20181010
  Serious: Yes (Disabling)
  Sender: FDA-Public Use
  Company Number: US-MIST-STN-2018-0503

PATIENT
  Age: 75 Year
  Sex: Male
  Weight: 77.18 kg

DRUGS (2)
  1. STENDRA [Suspect]
     Active Substance: AVANAFIL
     Indication: ERECTILE DYSFUNCTION
     Dosage: 200MG ON TWO OCCASIONS WITHIN 10 DAYS
     Route: 048
     Dates: start: 201807, end: 201808
  2. UNSPECIFIED BLOOD PRESSURE PILL [Concomitant]
     Indication: BLOOD PRESSURE ABNORMAL

REACTIONS (1)
  - Deafness [Not Recovered/Not Resolved]

NARRATIVE: CASE EVENT DATE: 20180806
